FAERS Safety Report 7007108-5 (Version None)
Quarter: 2010Q3

REPORT INFORMATION
  Report Type: 
  Country: None (occurrence: None)
  Receive Date: 20100922
  Receipt Date: 20100906
  Transmission Date: 20110219
  Serious: Yes (Hospitalization)
  Sender: FDA-Public Use
  Company Number: BR-SANOFI-AVENTIS-2010SA054574

PATIENT
  Age: 16 Year
  Sex: Male

DRUGS (4)
  1. CHLOROQUINE SULFATE [Suspect]
     Route: 065
  2. CHLOROQUINE SULFATE [Suspect]
     Route: 065
  3. PRIMAQUINE [Suspect]
     Route: 065
  4. DICLOFENAC SODIUM [Concomitant]
     Route: 042

REACTIONS (10)
  - ASTHENIA [None]
  - BLOOD CREATININE INCREASED [None]
  - BLOOD POTASSIUM INCREASED [None]
  - BLOOD UREA INCREASED [None]
  - CHILLS [None]
  - CHROMATURIA [None]
  - MYALGIA [None]
  - PAIN IN EXTREMITY [None]
  - RENAL TUBULAR NECROSIS [None]
  - RHABDOMYOLYSIS [None]
